FAERS Safety Report 8004882-6 (Version None)
Quarter: 2011Q4

REPORT INFORMATION
  Report Type: 
  Country: None (occurrence: None)
  Receive Date: 20111223
  Receipt Date: 20111223
  Transmission Date: 20120403
  Serious: No
  Sender: FDA-Public Use
  Company Number: None

PATIENT
  Age: 37 Year
  Sex: Male
  Weight: 86.182 kg

DRUGS (1)
  1. PROPECIA [Suspect]
     Indication: ALOPECIA
     Dosage: 1 TABLET
     Route: 048

REACTIONS (3)
  - ERECTILE DYSFUNCTION [None]
  - SEXUAL DYSFUNCTION [None]
  - LIBIDO DECREASED [None]
